FAERS Safety Report 19964366 (Version 1)
Quarter: 2021Q4

REPORT INFORMATION
  Report Type: Other
  Country: IN (occurrence: IN)
  Receive Date: 20211018
  Receipt Date: 20211018
  Transmission Date: 20220303
  Serious: Yes (Hospitalization, Other)
  Sender: FDA-Public Use
  Company Number: IN-MERCK HEALTHCARE KGAA-9270875

PATIENT
  Sex: Female

DRUGS (8)
  1. METFORMIN HYDROCHLORIDE [Suspect]
     Active Substance: METFORMIN HYDROCHLORIDE
     Indication: Diabetes mellitus
  2. TACROLIMUS [Concomitant]
     Active Substance: TACROLIMUS
     Indication: Menstrual cycle management
     Route: 048
  3. PREDNISOLONE [Concomitant]
     Active Substance: PREDNISOLONE
     Indication: Menstrual cycle management
  4. PROGESTERONE [Concomitant]
     Active Substance: PROGESTERONE
     Indication: Product used for unknown indication
  5. DUPHASTON [Concomitant]
     Active Substance: DYDROGESTERONE
     Indication: Product used for unknown indication
  6. ESTRADIOL VALERATE [Concomitant]
     Active Substance: ESTRADIOL VALERATE
     Indication: Product used for unknown indication
  7. AZATHIOPRINE [Concomitant]
     Active Substance: AZATHIOPRINE
     Indication: Menstrual cycle management
  8. INSULIN NOS [Concomitant]
     Active Substance: INSULIN NOS
     Indication: Diabetes mellitus

REACTIONS (10)
  - Premature delivery [Recovered/Resolved]
  - Complication of pregnancy [Recovered/Resolved]
  - Umbilical cord vascular disorder [Recovered/Resolved]
  - Oligohydramnios [Recovered/Resolved]
  - Gestational hypertension [Unknown]
  - Proteinuria [Unknown]
  - Weight increased [Unknown]
  - Oedema peripheral [Unknown]
  - Live birth [Recovered/Resolved]
  - Maternal exposure during pregnancy [Recovered/Resolved]
